FAERS Safety Report 7493766-8 (Version None)
Quarter: 2011Q2

REPORT INFORMATION
  Report Type: 
  Country: None (occurrence: None)
  Receive Date: 20110520
  Receipt Date: 20110304
  Transmission Date: 20111010
  Serious: No
  Sender: FDA-Public Use
  Company Number: US-ASTRAZENECA-2011SE12553

PATIENT
  Age: 38 Year
  Sex: Male
  Weight: 72.6 kg

DRUGS (4)
  1. FISH OIL [Concomitant]
  2. VIMOVO [Suspect]
     Indication: ARTHRALGIA
     Route: 048
     Dates: start: 20110104
  3. ZANTAC [Concomitant]
     Indication: ABDOMINAL DISCOMFORT
  4. LORATADINE [Concomitant]
     Indication: MULTIPLE ALLERGIES

REACTIONS (3)
  - DYSGEUSIA [None]
  - DRUG INEFFECTIVE [None]
  - TONGUE DRY [None]
